FAERS Safety Report 5897200-0 (Version None)
Quarter: 2008Q3

REPORT INFORMATION
  Report Type: 
  Country: None (occurrence: None)
  Receive Date: 20080923
  Receipt Date: 20080916
  Transmission Date: 20090109
  Serious: Yes (Hospitalization, Other)
  Sender: FDA-Public Use
  Company Number: 2008SP019233

PATIENT
  Sex: Female

DRUGS (4)
  1. MIRALAX [Suspect]
     Indication: CONSTIPATION
     Dosage: ; TID; PO
     Route: 048
     Dates: start: 20080301, end: 20080912
  2. MIRALAX [Suspect]
     Indication: OFF LABEL USE
     Dosage: ; TID; PO
     Route: 048
     Dates: start: 20080301, end: 20080912
  3. DONNATOL [Concomitant]
  4. DARVOCET [Concomitant]

REACTIONS (2)
  - ABDOMINAL PAIN [None]
  - PROCTALGIA [None]
